FAERS Safety Report 4518423-9 (Version None)
Quarter: 2004Q4

REPORT INFORMATION
  Report Type: 
  Country: None (occurrence: None)
  Receive Date: 20041202
  Receipt Date: 20041124
  Transmission Date: 20050328
  Serious: Yes (Other)
  Sender: FDA-Public Use
  Company Number: THQ2004A00980

PATIENT
  Age: 62 Year
  Sex: Female

DRUGS (5)
  1. LANSOPRAZOLE [Suspect]
     Dosage: 30 MG (30 MG, 1 IN 1 D) PER ORAL
     Route: 048
  2. NEVIRAPINE (NEVIRAPINE) [Suspect]
     Indication: HIV INFECTION
     Dosage: 400 MG (200 MG, 2 IN 1 D) PER ORAL
     Route: 048
  3. BACTRIM [Suspect]
     Indication: HIV INFECTION
     Dosage: 480 MG (480 MG, 1 IN 1 D) PER ORAL
     Route: 048
  4. COMBIVIR [Suspect]
     Indication: HIV INFECTION
     Dosage: (2 IN 1 D) PER ORAL
     Route: 048
  5. FLUVAX [Suspect]
     Indication: IMMUNISATION
     Dates: start: 20041101, end: 20041101

REACTIONS (2)
  - DRUG INTERACTION [None]
  - INJECTION SITE SWELLING [None]
